FAERS Safety Report 10403418 (Version 2)
Quarter: 2014Q3

REPORT INFORMATION
  Report Type: Report from Study
  Country: BR (occurrence: BR)
  Receive Date: 20140822
  Receipt Date: 20140902
  Transmission Date: 20150326
  Serious: Yes (Other)
  Sender: FDA-Public Use
  Company Number: PHHY2014BR102420

PATIENT
  Age: 62 Year
  Sex: Female
  Weight: 76 kg

DRUGS (5)
  1. GALVUS MET [Suspect]
     Active Substance: METFORMIN HYDROCHLORIDE\VILDAGLIPTIN
     Indication: DIABETES MELLITUS
     Dosage: 2 DF (850/50 MG), DAILY (IN THE MORNING AND AT NIGHT)
     Route: 048
  2. DIOSMIN [Suspect]
     Active Substance: DIOSMIN
     Dosage: UNK UKN, UNK
  3. ARADOIS [Suspect]
     Active Substance: LOSARTAN POTASSIUM
     Indication: BLOOD PRESSURE ABNORMAL
     Dosage: 2 DF, UNK (50 MG)
  4. OMEPRAZOLE. [Suspect]
     Active Substance: OMEPRAZOLE
     Dosage: UNK UKN, UNK
  5. CALCIUM [Suspect]
     Active Substance: CALCIUM
     Dosage: UNK UKN, UNK

REACTIONS (10)
  - Dyspnoea [Unknown]
  - Sarcoidosis [Not Recovered/Not Resolved]
  - Fatigue [Unknown]
  - Dysphonia [Unknown]
  - Malaise [Unknown]
  - Pulmonary mass [Not Recovered/Not Resolved]
  - Hypertension [Unknown]
  - Speech disorder [Not Recovered/Not Resolved]
  - Vocal cord disorder [Unknown]
  - Chest pain [Unknown]

NARRATIVE: CASE EVENT DATE: 201306
